FAERS Safety Report 11494105 (Version 1)
Quarter: 2015Q3

REPORT INFORMATION
  Report Type: Spontaneous
  Country: US (occurrence: US)
  Receive Date: 20150911
  Receipt Date: 20150911
  Transmission Date: 20151125
  Serious: No
  Sender: FDA-Public Use
  Company Number: US-ROCHE-1043515

PATIENT
  Sex: Female

DRUGS (1)
  1. PEGASYS [Suspect]
     Active Substance: PEGINTERFERON ALFA-2A
     Indication: PRODUCT USED FOR UNKNOWN INDICATION
     Route: 065

REACTIONS (18)
  - Retching [Unknown]
  - Fatigue [Unknown]
  - White blood cell count decreased [Unknown]
  - Pruritus [Unknown]
  - Immunosuppression [Unknown]
  - Limb discomfort [Unknown]
  - Nausea [Unknown]
  - Skin mass [Unknown]
  - Dry mouth [Unknown]
  - Ill-defined disorder [Unknown]
  - Insomnia [Unknown]
  - Ear infection [Unknown]
  - Red blood cell count abnormal [Unknown]
  - Haemorrhoids [Unknown]
  - Dry skin [Unknown]
  - Diarrhoea [Unknown]
  - Stomatitis [Unknown]
  - Paraesthesia [Unknown]
